FAERS Safety Report 13532177 (Version 2)
Quarter: 2017Q2

REPORT INFORMATION
  Report Type: Spontaneous
  Country: FR (occurrence: FR)
  Receive Date: 20170510
  Receipt Date: 20170616
  Transmission Date: 20170830
  Serious: Yes (Hospitalization)
  Sender: FDA-Public Use
  Company Number: FR-PFIZER INC-2017193220

PATIENT
  Age: 60 Year
  Sex: Female

DRUGS (25)
  1. LASILIX /00032601/ [Suspect]
     Active Substance: FUROSEMIDE
     Indication: RENAL TRANSPLANT
     Dosage: UNK
     Route: 048
     Dates: start: 20170124
  2. BACTRIM [Suspect]
     Active Substance: SULFAMETHOXAZOLE\TRIMETHOPRIM
     Indication: PROPHYLAXIS
     Dosage: 3 DF, WEEKLY
     Route: 048
     Dates: start: 20170124, end: 20170327
  3. MYFORTIC [Suspect]
     Active Substance: MYCOPHENOLATE SODIUM
     Dosage: 180 MG, 2X/DAY
     Dates: start: 20170322, end: 20170328
  4. DIFFU K [Concomitant]
     Active Substance: POTASSIUM CHLORIDE
     Dosage: 600 MG, 2X/DAY
     Dates: start: 20170126
  5. CERTICAN [Suspect]
     Active Substance: EVEROLIMUS
     Indication: PROPHYLAXIS AGAINST TRANSPLANT REJECTION
     Dosage: 1 MG, 2X/DAY
     Route: 048
     Dates: start: 20170214
  6. MYFORTIC [Suspect]
     Active Substance: MYCOPHENOLATE SODIUM
     Dosage: 720 MG, 2X/DAY
     Route: 048
     Dates: start: 20170209
  7. NEORAL [Concomitant]
     Active Substance: CYCLOSPORINE
     Dosage: 180 MG, 2X/DAY
     Dates: start: 20170121, end: 20170209
  8. NEORAL [Concomitant]
     Active Substance: CYCLOSPORINE
     Dosage: 125 MG, 2X/DAY
     Dates: start: 20170316
  9. CORTANCYL [Concomitant]
     Active Substance: PREDNISONE
     Dosage: 30 MG, DAILY
     Dates: start: 20170127
  10. ARANESP [Concomitant]
     Active Substance: DARBEPOETIN ALFA
     Dosage: UNK
  11. THYMOGLOBULINE [Concomitant]
     Active Substance: LAPINE T-LYMPHOCYTE IMMUNE GLOBULIN
     Dosage: UNK
     Dates: start: 20170209, end: 20170217
  12. SODIUM BICARBONATE. [Concomitant]
     Active Substance: SODIUM BICARBONATE
     Dosage: 500 MG, 3X/DAY
     Dates: start: 20170209
  13. PHOSPHONEUROS [Concomitant]
     Active Substance: CALCIUM PHOSPHATE, DIBASIC, ANHYDROUS\MAGNESIUM GLYCEROPHOSPHATE\PHOSPHORIC ACID\SODIUM PHOSPHATE, DIBASIC
     Dosage: 50 GTT, 2X/DAY
     Dates: start: 20170215
  14. TAHOR [Suspect]
     Active Substance: ATORVASTATIN CALCIUM
     Indication: CARDIOVASCULAR EVENT PROPHYLAXIS
     Dosage: 1 DF, 1X/DAY
     Route: 048
     Dates: start: 20170124
  15. ROVALCYTE [Suspect]
     Active Substance: VALGANCICLOVIR HYDROCHLORIDE
     Indication: PROPHYLAXIS
     Dosage: 1 DF, 2X/DAY
     Route: 048
     Dates: start: 20170124, end: 20170327
  16. MAG 2 /00454301/ [Concomitant]
     Active Substance: MAGNESIUM CARBONATE
     Dosage: 1 DF, 2X/DAY
     Dates: start: 20170126
  17. INEXIUM /01479302/ [Suspect]
     Active Substance: ESOMEPRAZOLE MAGNESIUM
     Indication: PROPHYLAXIS AGAINST GASTROINTESTINAL ULCER
     Dosage: 1 DF, 1X/DAY
     Route: 048
     Dates: start: 20170121, end: 20170322
  18. MYFORTIC [Suspect]
     Active Substance: MYCOPHENOLATE SODIUM
     Indication: PROPHYLAXIS AGAINST TRANSPLANT REJECTION
     Dosage: 1080 MG, 2X/DAY
     Route: 048
     Dates: start: 20170121
  19. CERTICAN [Suspect]
     Active Substance: EVEROLIMUS
     Dosage: 1.25 MG, DAILY
     Route: 048
     Dates: start: 20170222, end: 20170316
  20. MYFORTIC [Suspect]
     Active Substance: MYCOPHENOLATE SODIUM
     Dosage: 360 MG, 2X/DAY
     Route: 048
     Dates: start: 20170220
  21. CORTANCYL [Concomitant]
     Active Substance: PREDNISONE
     Dosage: 60 MG, DAILY
     Dates: start: 20170121
  22. PARACETAMOL [Concomitant]
     Active Substance: ACETAMINOPHEN
     Dosage: UNK UNK, AS NEEDED
     Dates: start: 20170202
  23. CORTANCYL [Concomitant]
     Active Substance: PREDNISONE
     Dosage: 50 MG, DAILY
     Dates: start: 20170206
  24. EPREX [Concomitant]
     Active Substance: ERYTHROPOIETIN
     Dosage: 6000 IU, THREE TIMES WEEKLY
     Dates: start: 20170131
  25. OROCAL /00944201/ [Concomitant]
     Active Substance: CALCIUM CARBONATE\CHOLECALCIFEROL
     Dosage: 500 MG, DAILY
     Dates: start: 20170217

REACTIONS (1)
  - Renal lymphocele [Recovered/Resolved with Sequelae]

NARRATIVE: CASE EVENT DATE: 20170224
